FAERS Safety Report 7270696-8 (Version None)
Quarter: 2011Q1

REPORT INFORMATION
  Report Type: 
  Country: None (occurrence: None)
  Receive Date: 20110202
  Receipt Date: 20110124
  Transmission Date: 20110831
  Serious: Yes (Hospitalization)
  Sender: FDA-Public Use
  Company Number: B0695569A

PATIENT
  Sex: Male

DRUGS (4)
  1. LOVENOX [Concomitant]
     Indication: PHLEBITIS
     Route: 065
     Dates: start: 20101212
  2. AUGMENTIN [Suspect]
     Indication: ERYSIPELAS
     Dosage: 6G PER DAY
     Route: 048
     Dates: start: 20101222, end: 20101228
  3. AUGMENTIN [Suspect]
     Route: 048
     Dates: start: 20101218, end: 20101221
  4. ORBENIN CAP [Concomitant]
     Indication: ERYSIPELAS
     Route: 065
     Dates: start: 20101212, end: 20101217

REACTIONS (3)
  - MIXED LIVER INJURY [None]
  - OVERDOSE [None]
  - CHOLESTASIS [None]
